FAERS Safety Report 6670354-4 (Version None)
Quarter: 2010Q2

REPORT INFORMATION
  Report Type: 
  Country: None (occurrence: None)
  Receive Date: 20100405
  Receipt Date: 20100325
  Transmission Date: 20101027
  Serious: Yes (Disabling)
  Sender: FDA-Public Use
  Company Number: 2010AL001780

PATIENT
  Sex: Female

DRUGS (1)
  1. METOCLOPRAMIDE [Suspect]
     Indication: GASTROINTESTINAL DISORDER
     Dosage: PO
     Route: 048
     Dates: start: 20030812, end: 20040410

REACTIONS (14)
  - ANXIETY [None]
  - DEFORMITY [None]
  - DYSKINESIA [None]
  - DYSTONIA [None]
  - ECONOMIC PROBLEM [None]
  - EMOTIONAL DISTRESS [None]
  - EXTRAPYRAMIDAL DISORDER [None]
  - MENTAL DISORDER [None]
  - MOTOR DYSFUNCTION [None]
  - NERVOUS SYSTEM DISORDER [None]
  - PAIN [None]
  - PARKINSONISM [None]
  - QUALITY OF LIFE DECREASED [None]
  - TARDIVE DYSKINESIA [None]
